FAERS Safety Report 8538579-0 (Version None)
Quarter: 2012Q3

REPORT INFORMATION
  Report Type: 
  Country: None (occurrence: None)
  Receive Date: 20120726
  Receipt Date: 20120717
  Transmission Date: 20120928
  Serious: Yes (Hospitalization)
  Sender: FDA-Public Use
  Company Number: CA-JNJFOC-20120703556

PATIENT
  Sex: Male
  Weight: 97 kg

DRUGS (6)
  1. REMICADE [Suspect]
     Indication: ANKYLOSING SPONDYLITIS
     Route: 042
     Dates: start: 20120511
  2. NICODERM [Concomitant]
     Route: 065
  3. TYLENOL [Concomitant]
     Route: 065
  4. FLEXERIL [Concomitant]
     Route: 065
  5. SLEEPING PILL NOS [Concomitant]
     Route: 065
  6. DILAUDID [Concomitant]
     Route: 065

REACTIONS (3)
  - OXYGEN SATURATION DECREASED [None]
  - SINUS CONGESTION [None]
  - DYSPNOEA [None]
